FAERS Safety Report 18297947 (Version 1)
Quarter: 2020Q3

REPORT INFORMATION
  Report Type: Spontaneous
  Country: US (occurrence: US)
  Receive Date: 20200922
  Receipt Date: 20200922
  Transmission Date: 20201103
  Serious: Yes (Death)
  Sender: FDA-Public Use
  Company Number: US-FRESENIUS MEDICAL CARE RENAL THERAPIES GROUP-FMC-2009-001099

PATIENT
  Age: 65 Year
  Sex: Female
  Weight: 110 kg

DRUGS (14)
  1. VITAMIN [Concomitant]
     Active Substance: VITAMINS
  2. HEPARIN [Concomitant]
     Active Substance: HEPARIN SODIUM
  3. DELFLEX WITH DEXTROSE 1.5% LOW MAGNESIUM LOW CALCIUM [Suspect]
     Active Substance: CALCIUM CHLORIDE\DEXTROSE\MAGNESIUM CHLORIDE\SODIUM CHLORIDE\SODIUM LACTATE
     Indication: END STAGE RENAL DISEASE
     Dosage: FILL VOLUME 2200 ML, 3 EXCHANGES, LAST FILL 1500 ML, ONE DAYTIME EXCHANGE 1500, DWELL TIME 2 HOURS A
     Route: 033
     Dates: start: 20200727
  4. DELFLEX WITH DEXTROSE 4.25% LOW MAGNESIUM LOW CALCIUM [Suspect]
     Active Substance: CALCIUM CHLORIDE\DEXTROSE\MAGNESIUM CHLORIDE\SODIUM CHLORIDE\SODIUM LACTATE
     Indication: END STAGE RENAL DISEASE
     Dosage: FILL VOLUME 2200 ML, 3 EXCHANGES, LAST FILL 1500 ML, ONE DAYTIME EXCHANGE 1500, DWELL TIME 2 HOURS A
     Route: 033
     Dates: start: 20200727
  5. INSULIN [Concomitant]
     Active Substance: INSULIN NOS
  6. VITAMIN D3 [Concomitant]
     Active Substance: CHOLECALCIFEROL
  7. DELFLEX WITH DEXTROSE 2.5% LOW MAGNESIUM LOW CALCIUM [Suspect]
     Active Substance: CALCIUM CHLORIDE\DEXTROSE\MAGNESIUM CHLORIDE\SODIUM CHLORIDE\SODIUM LACTATE
     Indication: END STAGE RENAL DISEASE
     Dosage: FILL VOLUME 2200 ML, 3 EXCHANGES, LAST FILL 1500 ML, ONE DAYTIME EXCHANGE 1500, DWELL TIME 2 HOURS A
     Route: 033
     Dates: start: 20200727
  8. NITROGLYCERINE [Concomitant]
     Active Substance: NITROGLYCERIN
  9. CARVEDILOL. [Concomitant]
     Active Substance: CARVEDILOL
  10. LASIX [Concomitant]
     Active Substance: FUROSEMIDE
  11. ASPIRIN. [Concomitant]
     Active Substance: ASPIRIN
  12. CLOPIDOGREL [Concomitant]
     Active Substance: CLOPIDOGREL BISULFATE
  13. GENTAMYCIN [Concomitant]
     Active Substance: GENTAMICIN
  14. AMLODIPINE [Concomitant]
     Active Substance: AMLODIPINE BESYLATE

REACTIONS (1)
  - Cardiac arrest [Fatal]
